FAERS Safety Report 14193196 (Version 2)
Quarter: 2018Q1

REPORT INFORMATION
  Report Type: Report from Study
  Country: DE (occurrence: DE)
  Receive Date: 20171116
  Receipt Date: 20180319
  Transmission Date: 20180508
  Serious: Yes (Hospitalization)
  Sender: FDA-Public Use
  Company Number: DE-ROCHE-2025935

PATIENT
  Age: 80 Year
  Sex: Female
  Weight: 54 kg

DRUGS (5)
  1. BEVACIZUMAB. [Suspect]
     Active Substance: BEVACIZUMAB
     Indication: COLORECTAL CANCER
     Route: 042
  2. XELODA [Suspect]
     Active Substance: CAPECITABINE
     Dosage: ON DAYS 1 AND 14
     Route: 048
     Dates: start: 20091013
  3. XELODA [Suspect]
     Active Substance: CAPECITABINE
     Indication: COLORECTAL CANCER
     Dosage: ON DAYS 1 AND 14
     Route: 048
  4. XELODA [Suspect]
     Active Substance: CAPECITABINE
     Dosage: ON DAYS 1 AND 14
     Route: 048
     Dates: start: 20090915
  5. BEVACIZUMAB. [Suspect]
     Active Substance: BEVACIZUMAB
     Dosage: 4TH CYCLE
     Route: 042

REACTIONS (4)
  - Dehydration [Unknown]
  - Transient ischaemic attack [Unknown]
  - Hypertension [Unknown]
  - Hypertensive crisis [Unknown]

NARRATIVE: CASE EVENT DATE: 20091103
